FAERS Safety Report 6941364-4 (Version None)
Quarter: 2010Q3

REPORT INFORMATION
  Report Type: 
  Country: None (occurrence: None)
  Receive Date: 20100825
  Receipt Date: 20100820
  Transmission Date: 20110219
  Serious: Yes (Life-Threatening, Hospitalization)
  Sender: FDA-Public Use
  Company Number: PHHO2007NL14379

PATIENT
  Sex: Female
  Weight: 81 kg

DRUGS (3)
  1. CERTICAN [Suspect]
     Indication: LIVER TRANSPLANT
     Dosage: 3MG DAILY
     Route: 048
     Dates: start: 20070706
  2. NEORAL [Suspect]
     Indication: LIVER TRANSPLANT
     Dosage: 300 MG DAILY DOSE
     Route: 048
     Dates: start: 20070706, end: 20070822
  3. PREDNISONE [Concomitant]
     Indication: LIVER TRANSPLANT
     Dosage: 10 MG, QD
     Route: 048

REACTIONS (6)
  - ABDOMINAL PAIN [None]
  - INCISIONAL HERNIA [None]
  - INCISIONAL HERNIA REPAIR [None]
  - PNEUMOCYSTIS JIROVECI INFECTION [None]
  - RENAL IMPAIRMENT [None]
  - RESPIRATORY FAILURE [None]
